FAERS Safety Report 9461219 (Version 1)
Quarter: 2013Q3

REPORT INFORMATION
  Report Type: Spontaneous
  Country: US (occurrence: None)
  Receive Date: 20130814
  Receipt Date: 20130814
  Transmission Date: 20140515
  Serious: Yes (Disabling)
  Sender: FDA-Public Use
  Company Number: None

PATIENT
  Age: 72 Year
  Sex: Female
  Weight: 61.24 kg

DRUGS (7)
  1. BENICAR HCT [Suspect]
     Indication: HYPERTENSION
     Dosage: 1   ONCE A DAY MOUTH
     Route: 048
     Dates: start: 20080513, end: 20130609
  2. LIALDA [Concomitant]
  3. AMLODIPINE BESYLATE [Concomitant]
  4. HYDROCHLOROTHIAZ [Concomitant]
  5. LUMIGAN 0.01% [Concomitant]
  6. ALCON AZOPT [Concomitant]
  7. CITRACAL + D [Concomitant]

REACTIONS (2)
  - Pneumonia [None]
  - Colitis [None]
